FAERS Safety Report 14692011 (Version 1)
Quarter: 2018Q1

REPORT INFORMATION
  Report Type: Report from Study
  Country: PH (occurrence: PH)
  Receive Date: 20180329
  Receipt Date: 20180329
  Transmission Date: 20180509
  Serious: Yes (Other)
  Sender: FDA-Public Use
  Company Number: PH-CHEPLA-C20180280

PATIENT

DRUGS (1)
  1. ORLISTAT. [Suspect]
     Active Substance: ORLISTAT
     Indication: OBESITY
     Dosage: 120 MG 3 TIMES A DAY AFTER/DURING MEALS (TID DS) FOR 12 WEEKS (55 PATIENTS REACHED WEEK 12)
     Route: 048

REACTIONS (15)
  - Rectal discharge [Recovered/Resolved]
  - Defaecation urgency [Recovered/Resolved]
  - Dizziness [Recovered/Resolved]
  - Diarrhoea [Recovered/Resolved]
  - Anal incontinence [Recovered/Resolved]
  - Faeces soft [Recovered/Resolved]
  - Dyspepsia [Recovered/Resolved]
  - Faeces hard [Recovered/Resolved]
  - Abdominal pain upper [Recovered/Resolved]
  - Influenza [Recovered/Resolved]
  - Steatorrhoea [Recovered/Resolved]
  - Pneumonia [Recovered/Resolved]
  - Dengue fever [Recovered/Resolved]
  - Back pain [Recovered/Resolved]
  - Headache [Recovered/Resolved]
